FAERS Safety Report 17135810 (Version 1)
Quarter: 2019Q4

REPORT INFORMATION
  Report Type: Spontaneous
  Country: IT (occurrence: IT)
  Receive Date: 20191210
  Receipt Date: 20191210
  Transmission Date: 20200122
  Serious: Yes (Death, Hospitalization, Other)
  Sender: FDA-Public Use
  Company Number: IT-ABBVIE-17K-083-3064519-00

PATIENT
  Age: 76 Year
  Sex: Male
  Weight: 70 kg

DRUGS (1)
  1. IMBRUVICA [Suspect]
     Active Substance: IBRUTINIB
     Indication: CHRONIC LYMPHOCYTIC LEUKAEMIA
     Route: 048
     Dates: start: 20190625

REACTIONS (14)
  - Cardiac failure [Unknown]
  - Haemorrhage [Fatal]
  - Diarrhoea [Fatal]
  - Infection [Fatal]
  - Ischaemic stroke [Unknown]
  - Neoplasm malignant [Unknown]
  - Granulocytopenia [Fatal]
  - Atrial fibrillation [Fatal]
  - Haemorrhage intracranial [Unknown]
  - Ileal perforation [Unknown]
  - Hypertension [Fatal]
  - Sepsis [Recovered/Resolved]
  - Febrile neutropenia [Fatal]
  - Pyrexia [Fatal]

NARRATIVE: CASE EVENT DATE: 20191115
